FAERS Safety Report 6830560-2 (Version None)
Quarter: 2010Q3

REPORT INFORMATION
  Report Type: 
  Country: None (occurrence: None)
  Receive Date: 20100712
  Receipt Date: 20100629
  Transmission Date: 20110219
  Serious: Yes (Other)
  Sender: FDA-Public Use
  Company Number: US-JNJFOC-20100110569

PATIENT
  Sex: Male
  Weight: 95.26 kg

DRUGS (6)
  1. REMICADE [Suspect]
     Indication: ANKYLOSING SPONDYLITIS
     Route: 042
  2. REMICADE [Suspect]
     Route: 042
  3. REMICADE [Suspect]
     Route: 042
  4. REMICADE [Suspect]
     Route: 042
  5. BYSTOLIC [Concomitant]
     Indication: BLOOD PRESSURE
  6. ENBREL [Concomitant]
     Indication: ANKYLOSING SPONDYLITIS

REACTIONS (7)
  - BACK INJURY [None]
  - BEDRIDDEN [None]
  - DRUG INEFFECTIVE [None]
  - HYPERTENSION [None]
  - INAPPROPRIATE SCHEDULE OF DRUG ADMINISTRATION [None]
  - LYMPHADENOPATHY [None]
  - MUSCLE SPASMS [None]
